FAERS Safety Report 8541993-0 (Version None)
Quarter: 2012Q3

REPORT INFORMATION
  Report Type: 
  Country: None (occurrence: None)
  Receive Date: 20120726
  Receipt Date: 20111012
  Transmission Date: 20120928
  Serious: No
  Sender: FDA-Public Use
  Company Number: US-ASTRAZENECA-2011SE58630

PATIENT
  Age: 39 Year
  Sex: Male
  Weight: 68 kg

DRUGS (8)
  1. PROZAC [Concomitant]
  2. ZIAC [Concomitant]
  3. PRAVASTATIN [Concomitant]
  4. SEROQUEL [Suspect]
     Route: 048
  5. SEROQUEL [Suspect]
     Indication: BIPOLAR DISORDER
     Route: 048
  6. TEGRETOL [Concomitant]
  7. SEROQUEL [Suspect]
     Route: 048
  8. SEROQUEL [Suspect]
     Indication: RESTLESSNESS
     Route: 048

REACTIONS (2)
  - DRUG INEFFECTIVE [None]
  - OFF LABEL USE [None]
